FAERS Safety Report 10072114 (Version 1)
Quarter: 2014Q2

REPORT INFORMATION
  Report Type: Spontaneous
  Country: US (occurrence: None)
  Receive Date: 20140410
  Receipt Date: 20140410
  Transmission Date: 20141212
  Serious: Yes (Hospitalization)
  Sender: FDA-Public Use
  Company Number: None

PATIENT
  Age: 27 Year
  Sex: Male
  Weight: 88.5 kg

DRUGS (1)
  1. RHINO 5 PLUS [Suspect]
     Dosage: 1 PILL
     Dates: start: 20140405

REACTIONS (2)
  - Palpitations [None]
  - Hyperventilation [None]
